FAERS Safety Report 5671194-5 (Version None)
Quarter: 2008Q1

REPORT INFORMATION
  Report Type: 
  Country: None (occurrence: None)
  Receive Date: 20080318
  Receipt Date: 20080307
  Transmission Date: 20080703
  Serious: Yes (Hospitalization, Other)
  Sender: FDA-Public Use
  Company Number: US-ELI_LILLY_AND_COMPANY-US200803002110

PATIENT
  Sex: Male

DRUGS (5)
  1. STRATTERA [Suspect]
     Dosage: 60 MG, EACH MORNING
     Dates: end: 20080206
  2. STRATTERA [Suspect]
     Dosage: 40 MG, EACH EVENING
     Dates: end: 20080206
  3. RISPERDAL [Concomitant]
     Dosage: 1 MG, UNK
  4. BACLOFEN [Concomitant]
     Dosage: 1050 MG, DAILY (1/D)
     Route: 058
  5. TRAZODONE HCL [Concomitant]
     Dosage: 50 MG, AS NEEDED

REACTIONS (4)
  - AGGRESSION [None]
  - CONVULSION [None]
  - EYE ROLLING [None]
  - HYPOTONIA [None]
